FAERS Safety Report 4925929-7 (Version None)
Quarter: 2006Q1

REPORT INFORMATION
  Report Type: 
  Country: None (occurrence: None)
  Receive Date: 20060228
  Receipt Date: 20050414
  Transmission Date: 20060701
  Serious: Yes (Other)
  Sender: FDA-Public Use
  Company Number: US-GLAXOSMITHKLINE-A0554473A

PATIENT
  Age: 25 Year
  Sex: Female
  Weight: 58.2 kg

DRUGS (2)
  1. LAMICTAL [Suspect]
     Indication: BIPOLAR I DISORDER
     Route: 048
     Dates: start: 20050301
  2. ABILIFY [Concomitant]
     Dosage: 5MG UNKNOWN
     Route: 065

REACTIONS (3)
  - GINGIVAL SWELLING [None]
  - PHARYNGOLARYNGEAL PAIN [None]
  - RASH [None]
